FAERS Safety Report 8062410-3 (Version None)
Quarter: 2012Q1

REPORT INFORMATION
  Report Type: 
  Country: None (occurrence: None)
  Receive Date: 20120123
  Receipt Date: 20120117
  Transmission Date: 20120608
  Serious: Yes (Other)
  Sender: FDA-Public Use
  Company Number: US-AMGEN-USASP2011026008

PATIENT
  Age: 67 Year
  Sex: Male
  Weight: 129.25 kg

DRUGS (1)
  1. NPLATE [Suspect]
     Indication: IDIOPATHIC THROMBOCYTOPENIC PURPURA
     Dosage: .48 ML, UNK
     Route: 058
     Dates: start: 20101203, end: 20110128

REACTIONS (2)
  - PLATELET COUNT DECREASED [None]
  - WEIGHT INCREASED [None]
